FAERS Safety Report 8910729 (Version 1)
Quarter: 2012Q4

REPORT INFORMATION
  Report Type: Spontaneous
  Country: GB (occurrence: None)
  Receive Date: 20121107
  Receipt Date: 20121107
  Transmission Date: 20130627
  Serious: Yes (Hospitalization)
  Sender: FDA-Public Use
  Company Number: 2012AP003519

PATIENT
  Age: 30 Year
  Sex: Male

DRUGS (1)
  1. OMEPRAZOLE (OMEPRAZOLE) [Suspect]
     Indication: DRUG USE FOR UNKNOWN INDICATION
     Route: 048

REACTIONS (2)
  - Hepatitis acute [None]
  - Hepatitis E virus test positive [None]
